FAERS Safety Report 20582444 (Version 1)
Quarter: 2022Q1

REPORT INFORMATION
  Report Type: Spontaneous
  Country: US (occurrence: US)
  Receive Date: 20220311
  Receipt Date: 20220311
  Transmission Date: 20220423
  Serious: No
  Sender: FDA-Public Use
  Company Number: US-BEH-2022142906

PATIENT
  Sex: Female

DRUGS (1)
  1. PRIVIGEN [Suspect]
     Active Substance: HUMAN IMMUNOGLOBULIN G
     Indication: Ill-defined disorder
     Dosage: 55 GRAM, QMT, 3 DAYS
     Route: 042
     Dates: start: 202201

REACTIONS (1)
  - Blood pressure increased [Unknown]
